FAERS Safety Report 12268455 (Version 2)
Quarter: 2016Q2

REPORT INFORMATION
  Report Type: Spontaneous
  Country: US (occurrence: US)
  Receive Date: 20160414
  Receipt Date: 20160520
  Transmission Date: 20160815
  Serious: No
  Sender: FDA-Public Use
  Company Number: US-BAYER-2016-070613

PATIENT
  Age: 62 Year
  Sex: Female

DRUGS (6)
  1. BENADRYL ALLERGY [CETIRIZINE HYDROCHLORIDE] [Concomitant]
     Indication: MULTIPLE ALLERGIES
     Dosage: UNK
     Route: 048
  2. TYLENOL [DIPHENHYDRAMINE HYDROCHLORIDE,PARACETAMOL] [Concomitant]
     Active Substance: ACETAMINOPHEN\DIPHENHYDRAMINE HYDROCHLORIDE
     Indication: ARTHRALGIA
     Dosage: UNK
  3. DIAZEPAM. [Concomitant]
     Active Substance: DIAZEPAM
     Indication: SLEEP DISORDER THERAPY
     Dosage: UNK
  4. MULTIVITAMIN [Concomitant]
     Active Substance: VITAMINS
     Dosage: UNK
     Route: 048
  5. CLIMARA [Suspect]
     Active Substance: ESTRADIOL
     Dosage: UNK
     Route: 062
  6. SYNTHROID [Concomitant]
     Active Substance: LEVOTHYROXINE SODIUM
     Indication: HYPERTHYROIDISM
     Route: 048

REACTIONS (8)
  - Insomnia [Recovered/Resolved]
  - Pollakiuria [Recovered/Resolved]
  - Adverse reaction [None]
  - Device use issue [None]
  - Micturition urgency [None]
  - Drug ineffective [None]
  - Product physical issue [None]
  - Product quality issue [None]

NARRATIVE: CASE EVENT DATE: 20160403
